FAERS Safety Report 25873565 (Version 1)
Quarter: 2025Q4

REPORT INFORMATION
  Report Type: Spontaneous
  Country: US (occurrence: US)
  Receive Date: 20251002
  Receipt Date: 20251002
  Transmission Date: 20260117
  Serious: No
  Sender: INTRA-CELLULAR THERAPIES
  Company Number: US-INTRA-CELLULAR THERAPIES, INC.-2025ICT01609

PATIENT
  Age: 66 Year
  Sex: Female

DRUGS (4)
  1. CAPLYTA [Suspect]
     Active Substance: LUMATEPERONE
     Indication: Major depression
     Dosage: 42 MG, 1X/DAY
     Route: 048
     Dates: start: 202412, end: 202507
  2. CAPLYTA [Suspect]
     Active Substance: LUMATEPERONE
     Indication: Anxiety
     Dosage: 42 MG, EVERY 96 HOURS (EVERY 4 DAYS)
     Route: 048
     Dates: start: 202507, end: 2025
  3. CAPLYTA [Suspect]
     Active Substance: LUMATEPERONE
     Dosage: UNK, TAPER TO LOWER DOSE AND THEN TO LOWEST DOSE; WEANING OFF
     Route: 048
     Dates: start: 2025
  4. UNSPECIFIED OTHER MEDICATIONS FOR MAJOR DEPRESSIVE DISORDER [Concomitant]

REACTIONS (7)
  - Withdrawal syndrome [Not Recovered/Not Resolved]
  - Chest pain [Not Recovered/Not Resolved]
  - Feeling abnormal [Not Recovered/Not Resolved]
  - Nervousness [Not Recovered/Not Resolved]
  - Decreased appetite [Not Recovered/Not Resolved]
  - Tremor [Recovered/Resolved]
  - Off label use [Not Recovered/Not Resolved]

NARRATIVE: CASE EVENT DATE: 20241201
